FAERS Safety Report 9302335 (Version 1)
Quarter: 2013Q2

REPORT INFORMATION
  Report Type: Spontaneous
  Country: US (occurrence: US)
  Receive Date: 20130522
  Receipt Date: 20130522
  Transmission Date: 20140414
  Serious: No
  Sender: FDA-Public Use
  Company Number: US-009507513-1305GBR010372

PATIENT
  Age: 56 Year
  Sex: Female

DRUGS (25)
  1. DULERA [Suspect]
  2. ADVIL [Concomitant]
     Indication: PAIN
     Dosage: 800 MG, Q8H, AS NEEDED
     Route: 048
  3. MOTRIN [Concomitant]
     Indication: PAIN
     Dosage: 800 MG, Q8H, AS NEEDED
  4. MIRALAX [Concomitant]
     Dosage: 2 T/DAY17 GRAM/DOSE POWDER
  5. SPIRIVA HANDIHALER [Concomitant]
     Dosage: 18 MICROGRAM, PLACE ONE CAPSULE INTO DEVICE AND INHALE DAILY
  6. ACCUPRIL [Concomitant]
     Dosage: 2 DF, QD
     Route: 048
  7. ACIPHEX [Concomitant]
     Dosage: TAKE ONE TABLET BY MOUTH DAILY
  8. CLARINEX [Concomitant]
     Dosage: TAKE ONE TABLET BY MOUTH DAILY
     Route: 048
  9. GLUCOTROL XL [Concomitant]
     Dosage: ONE TABLET BY MOUTH DAILY
     Route: 048
  10. JANUMET [Concomitant]
     Dosage: TAKE 1 TABLET , BID, TAKE WITH YOUR LARGEST MEAL
     Route: 048
  11. LIPITOR [Concomitant]
     Dosage: 1 TABLET BY MOUTH NIGHLYT, HS
     Route: 048
  12. NORVASC [Concomitant]
     Dosage: 1 TABLET BY MOUTH DAILY
     Route: 048
  13. RISPERDAL [Concomitant]
     Dosage: ONE TABLET BY MOUTH EVERY NIGHT
     Route: 048
  14. SYNTHROID [Concomitant]
     Dosage: TAKE 11/2 TAB3 D/WEEK: 1 ALL OTHER DAYS
  15. VENTOLIN HFA [Concomitant]
     Indication: WHEEZING
     Dosage: 2 PUFFS, Q6H, AS NEEDED FOR WHEEZING.
     Route: 055
  16. CYANOCOBALAMIN [Concomitant]
     Dosage: PLACE 1 TABLET UNDER THE TONGUE 4 (FOUR) TIMES A WEEK
     Route: 060
  17. CHOLECALCIFEROL [Concomitant]
     Dosage: 5000 UNIT,QD
     Route: 048
  18. ZOLOFT [Concomitant]
     Dosage: TAKE ONE TABLET BY MOUTH DAILY
     Route: 048
  19. PROVENTIL [Concomitant]
  20. ZYRTEC-D [Concomitant]
  21. VASOTEC [Concomitant]
  22. NEXIUM [Concomitant]
  23. ADVAIR DISKUS [Concomitant]
  24. PRILOSEC [Concomitant]
  25. BACTRIM DS [Concomitant]

REACTIONS (1)
  - Drug hypersensitivity [Unknown]
